FAERS Safety Report 23890977 (Version 2)
Quarter: 2024Q2

REPORT INFORMATION
  Report Type: Spontaneous
  Country: JP (occurrence: JP)
  Receive Date: 20240523
  Receipt Date: 20240604
  Transmission Date: 20240716
  Serious: No
  Sender: FDA-Public Use
  Company Number: JP-BAUSCH-BL-2024-002558

PATIENT
  Age: 48 Year
  Sex: Male

DRUGS (5)
  1. BRODALUMAB [Suspect]
     Active Substance: BRODALUMAB
     Indication: Palmoplantar pustulosis
     Dosage: PATIENT STARTED RECEIVING LUMICEF IN THE EARLY EVENING OF 06/FEB/2024
     Route: 058
     Dates: start: 20240206, end: 20240206
  2. BRODALUMAB [Suspect]
     Active Substance: BRODALUMAB
     Dosage: SECOND DOSE
     Route: 058
     Dates: start: 20240213, end: 20240213
  3. BRODALUMAB [Suspect]
     Active Substance: BRODALUMAB
     Route: 058
     Dates: start: 20240220, end: 20240220
  4. BRODALUMAB [Suspect]
     Active Substance: BRODALUMAB
     Route: 058
     Dates: start: 20240304, end: 20240304
  5. BRODALUMAB [Suspect]
     Active Substance: BRODALUMAB
     Route: 058
     Dates: start: 20240319, end: 20240319

REACTIONS (2)
  - Vomiting [Recovering/Resolving]
  - Folliculitis [Unknown]

NARRATIVE: CASE EVENT DATE: 20240206
